FAERS Safety Report 6096250-1 (Version None)
Quarter: 2009Q1

REPORT INFORMATION
  Report Type: 
  Country: None (occurrence: None)
  Receive Date: 20090227
  Receipt Date: 20081020
  Transmission Date: 20090719
  Serious: Yes (Disabling)
  Sender: FDA-Public Use
  Company Number: A0752542A

PATIENT
  Sex: Male

DRUGS (3)
  1. LAMICTAL [Suspect]
     Dosage: 200MG PER DAY
     Route: 048
     Dates: start: 20060101
  2. CYMBALTA [Concomitant]
  3. ALLERGY MEDICINE [Concomitant]

REACTIONS (1)
  - DRUG INEFFECTIVE [None]
